FAERS Safety Report 5745475-0 (Version None)
Quarter: 2008Q2

REPORT INFORMATION
  Report Type: 
  Country: None (occurrence: None)
  Receive Date: 20080521
  Receipt Date: 20080512
  Transmission Date: 20081010
  Serious: Yes (Other)
  Sender: FDA-Public Use
  Company Number: US-ABBOTT-08P-163-0451566-00

PATIENT
  Sex: Female

DRUGS (4)
  1. RITONAVIR SOFT GELATIN CAPSULES [Suspect]
     Indication: ANTIRETROVIRAL THERAPY
     Dosage: 100 MG DAILY
     Route: 048
     Dates: start: 20080201
  2. ZIDOVUDINE [Suspect]
     Indication: ANTIRETROVIRAL THERAPY
     Dosage: 600 MG DAILY
     Route: 048
     Dates: start: 20080201
  3. LAMIVUDINE [Suspect]
     Indication: ANTIRETROVIRAL THERAPY
     Dosage: 300 MG DAILY
     Route: 048
     Dates: start: 20080201
  4. ATAZANAVIR SULFATE [Suspect]
     Indication: ANTIRETROVIRAL THERAPY
     Dosage: 300 MG DAILY
     Route: 048
     Dates: start: 20080201

REACTIONS (1)
  - CERVIX CARCINOMA [None]
